FAERS Safety Report 5300591-2 (Version None)
Quarter: 2007Q2

REPORT INFORMATION
  Report Type: 
  Country: None (occurrence: None)
  Receive Date: 20070418
  Receipt Date: 20070412
  Transmission Date: 20071010
  Serious: Yes (Life-Threatening)
  Sender: FDA-Public Use
  Company Number: KE-GLAXOSMITHKLINE-B0466384A

PATIENT
  Age: 24 Year
  Sex: Female
  Weight: 50.3 kg

DRUGS (3)
  1. COMBIVIR [Suspect]
     Indication: ANTIVIRAL PROPHYLAXIS
     Dosage: 1TAB TWICE PER DAY
     Route: 048
     Dates: start: 20060921
  2. NELFINAVIR [Suspect]
     Indication: ANTIVIRAL PROPHYLAXIS
     Dosage: 5TAB TWICE PER DAY
     Route: 048
     Dates: start: 20060921
  3. CO-TRIMOXAZOLE [Concomitant]
     Indication: PROPHYLAXIS

REACTIONS (3)
  - HEADACHE [None]
  - HEPATOTOXICITY [None]
  - JAUNDICE [None]
